FAERS Safety Report 8302933-2 (Version None)
Quarter: 2012Q2

REPORT INFORMATION
  Report Type: 
  Country: None (occurrence: None)
  Receive Date: 20120420
  Receipt Date: 20120417
  Transmission Date: 20120825
  Serious: Yes (Hospitalization)
  Sender: FDA-Public Use
  Company Number: FR-AMGEN-FRASP2012022812

PATIENT
  Age: 41 Year

DRUGS (5)
  1. TAXOTERE [Concomitant]
     Dosage: UNK
     Dates: start: 20120321
  2. FLUOROURACIL [Concomitant]
     Dosage: 500 MG/M2, UNK
  3. EPIRUBICIN [Concomitant]
     Dosage: 100 MG/M2, UNK
  4. NEULASTA [Suspect]
     Indication: CHEMOTHERAPY
     Dosage: UNK
     Dates: start: 20120322
  5. CYCLOPHOSPHAMIDE [Concomitant]
     Dosage: 100 MG/M2, UNK

REACTIONS (1)
  - FEBRILE BONE MARROW APLASIA [None]
